FAERS Safety Report 14018378 (Version 1)
Quarter: 2017Q3

REPORT INFORMATION
  Report Type: Spontaneous
  Country: US (occurrence: US)
  Receive Date: 20170928
  Receipt Date: 20170928
  Transmission Date: 20171128
  Serious: No
  Sender: FDA-Public Use
  Company Number: US-TEVA-709340USA

PATIENT
  Age: 77 Year
  Sex: Male

DRUGS (1)
  1. PRAZOSIN. [Suspect]
     Active Substance: PRAZOSIN
     Route: 065

REACTIONS (2)
  - Depression [Unknown]
  - Nightmare [Unknown]
